FAERS Safety Report 17757286 (Version 7)
Quarter: 2022Q2

REPORT INFORMATION
  Report Type: Spontaneous
  Country: US (occurrence: US)
  Receive Date: 20200507
  Receipt Date: 20220420
  Transmission Date: 20220720
  Serious: Yes (Hospitalization, Other)
  Sender: FDA-Public Use
  Company Number: US-GILEAD-2020-0464164

PATIENT
  Age: 57 Year
  Sex: Male
  Weight: 59.864 kg

DRUGS (89)
  1. VIREAD [Suspect]
     Active Substance: TENOFOVIR DISOPROXIL FUMARATE
     Indication: HIV infection
     Dosage: UNK
     Route: 048
     Dates: start: 2007, end: 2009
  2. VIREAD [Suspect]
     Active Substance: TENOFOVIR DISOPROXIL FUMARATE
     Dosage: UNK
     Route: 048
     Dates: start: 2007, end: 2009
  3. TRUVADA [Suspect]
     Active Substance: EMTRICITABINE\TENOFOVIR DISOPROXIL FUMARATE
     Indication: HIV infection
     Dosage: UNK
     Route: 048
     Dates: start: 2008, end: 20140626
  4. TRUVADA [Suspect]
     Active Substance: EMTRICITABINE\TENOFOVIR DISOPROXIL FUMARATE
     Dosage: UNK
     Route: 048
     Dates: start: 200608, end: 201404
  5. BIKTARVY [Concomitant]
     Active Substance: BICTEGRAVIR SODIUM\EMTRICITABINE\TENOFOVIR ALAFENAMIDE FUMARATE
  6. ACETAMINOPHEN [Concomitant]
     Active Substance: ACETAMINOPHEN
  7. ACYCLOVIR [Concomitant]
     Active Substance: ACYCLOVIR
  8. ASPIRIN [Concomitant]
     Active Substance: ASPIRIN
  9. ATORVASTATIN [Concomitant]
     Active Substance: ATORVASTATIN
  10. BACTRIM [Concomitant]
     Active Substance: SULFAMETHOXAZOLE\TRIMETHOPRIM
  11. CRESTOR [Concomitant]
     Active Substance: ROSUVASTATIN CALCIUM
  12. DEXAMETHASONE [Concomitant]
     Active Substance: DEXAMETHASONE
  13. FAMOTIDINE [Concomitant]
     Active Substance: FAMOTIDINE
  14. MORNIFLUMATE [Concomitant]
     Active Substance: MORNIFLUMATE
  15. HEPARIN [Concomitant]
     Active Substance: HEPARIN SODIUM
  16. LEVOFLOXACIN [Concomitant]
     Active Substance: LEVOFLOXACIN
  17. METHYLPREDNISOLONE [Concomitant]
     Active Substance: METHYLPREDNISOLONE
  18. OMEPRAZOLE [Concomitant]
     Active Substance: OMEPRAZOLE
  19. PANTOPRAZOLE [Concomitant]
     Active Substance: PANTOPRAZOLE
  20. PENICILLIN [Concomitant]
     Active Substance: PENICILLIN
  21. VANCOMYCIN [Concomitant]
     Active Substance: VANCOMYCIN
  22. EMTRIVA [Concomitant]
     Active Substance: EMTRICITABINE
  23. FUZEON [Concomitant]
     Active Substance: ENFUVIRTIDE
  24. ISENTRESS [Concomitant]
     Active Substance: RALTEGRAVIR POTASSIUM
     Dosage: UNK
     Dates: start: 2006, end: 20200916
  25. NORVIR [Concomitant]
     Active Substance: RITONAVIR
     Dosage: UNK
     Dates: start: 2006, end: 20200916
  26. PREZISTA [Concomitant]
     Active Substance: DARUNAVIR ETHANOLATE
     Dosage: UNK
     Dates: start: 2006, end: 20200916
  27. AVODART [Concomitant]
     Active Substance: DUTASTERIDE
     Dosage: UNK
     Dates: start: 20131011
  28. AZITHROMYCIN [Concomitant]
     Active Substance: AZITHROMYCIN
     Dosage: UNK
     Dates: start: 20170711, end: 20170714
  29. CHLORPROMAZINE [Concomitant]
     Active Substance: CHLORPROMAZINE
     Dosage: UNK
     Dates: start: 20140804, end: 20141016
  30. PREDNISONE [Concomitant]
     Active Substance: PREDNISONE
  31. ZOSYN [Concomitant]
     Active Substance: PIPERACILLIN SODIUM\TAZOBACTAM SODIUM
  32. MIDODRINE [Concomitant]
     Active Substance: MIDODRINE
  33. TRICOR [Concomitant]
     Active Substance: FENOFIBRATE
  34. OXANDRIN [Concomitant]
     Active Substance: OXANDROLONE
  35. MINOCYCLINE [Concomitant]
     Active Substance: MINOCYCLINE HYDROCHLORIDE
  36. ATIVAN [Concomitant]
     Active Substance: LORAZEPAM
  37. TEMAZEPAM [Concomitant]
     Active Substance: TEMAZEPAM
  38. VALIUM [Concomitant]
     Active Substance: DIAZEPAM
  39. TESTIM [Concomitant]
     Active Substance: TESTOSTERONE
  40. LISINOPRIL [Concomitant]
     Active Substance: LISINOPRIL
  41. MEGACE [Concomitant]
     Active Substance: MEGESTROL ACETATE
  42. VERSED [Concomitant]
     Active Substance: MIDAZOLAM HYDROCHLORIDE
  43. DIAZEPAM [Concomitant]
     Active Substance: DIAZEPAM
  44. HYDRALAZINE [Concomitant]
     Active Substance: HYDRALAZINE HYDROCHLORIDE
  45. LOVENOX [Concomitant]
     Active Substance: ENOXAPARIN SODIUM
  46. XANAX [Concomitant]
     Active Substance: ALPRAZOLAM
  47. ACETAMINOPHEN\OXYCODONE HYDROCHLORIDE\OXYCODONE TEREPHTHALATE [Concomitant]
     Active Substance: ACETAMINOPHEN\OXYCODONE HYDROCHLORIDE\OXYCODONE TEREPHTHALATE
  48. TESTOSTERONE CYPIONATE [Concomitant]
     Active Substance: TESTOSTERONE CYPIONATE
  49. NORCO [Concomitant]
     Active Substance: ACETAMINOPHEN\HYDROCODONE BITARTRATE
  50. REPATHA [Concomitant]
     Active Substance: EVOLOCUMAB
  51. LABETALOL [Concomitant]
     Active Substance: LABETALOL\LABETALOL HYDROCHLORIDE
  52. TORADOL [Concomitant]
     Active Substance: KETOROLAC TROMETHAMINE
  53. MARINOL [Concomitant]
     Active Substance: DRONABINOL
  54. DRONABINOL [Concomitant]
     Active Substance: DRONABINOL
  55. ZYRTEC [Concomitant]
     Active Substance: CETIRIZINE HYDROCHLORIDE
  56. SEROSTIM [Concomitant]
     Active Substance: SOMATROPIN
  57. MYTESI [Concomitant]
     Active Substance: CROFELEMER
  58. LOMOTIL [Concomitant]
     Active Substance: ATROPINE SULFATE\DIPHENOXYLATE HYDROCHLORIDE
  59. LIDOCAINE [Concomitant]
     Active Substance: LIDOCAINE
  60. BUPIVACAINE;LIDOCAINE [Concomitant]
  61. XYLOCAINE [Concomitant]
     Active Substance: LIDOCAINE HYDROCHLORIDE
  62. VENTOLIN HFA [Concomitant]
     Active Substance: ALBUTEROL SULFATE
  63. PROVENTIL [Concomitant]
     Active Substance: ALBUTEROL
  64. PLAVIX [Concomitant]
     Active Substance: CLOPIDOGREL BISULFATE
  65. DILAUDID [Concomitant]
     Active Substance: HYDROMORPHONE HYDROCHLORIDE
  66. CEFAZOLIN [Concomitant]
     Active Substance: CEFAZOLIN
  67. AMBIEN [Concomitant]
     Active Substance: ZOLPIDEM TARTRATE
  68. ZOFRAN [Concomitant]
     Active Substance: ONDANSETRON HYDROCHLORIDE
  69. BACITRACIN [Concomitant]
     Active Substance: BACITRACIN
  70. POLYMYXIN [Concomitant]
     Active Substance: POLYMYXIN
  71. MEPERIDINE [Concomitant]
     Active Substance: MEPERIDINE
  72. REGLAN [Concomitant]
     Active Substance: METOCLOPRAMIDE HYDROCHLORIDE
  73. LACTATED RINGERS SOLUTION [Concomitant]
     Active Substance: CALCIUM CHLORIDE\POTASSIUM CHLORIDE\SODIUM CHLORIDE\SODIUM LACTATE
  74. MORPHINE [Concomitant]
     Active Substance: MORPHINE
  75. SPIRIVA [Concomitant]
     Active Substance: TIOTROPIUM BROMIDE MONOHYDRATE
  76. LEVAQUIN [Concomitant]
     Active Substance: LEVOFLOXACIN
  77. ALTEPLASE [Concomitant]
     Active Substance: ALTEPLASE
  78. DIPRIVAN [Concomitant]
     Active Substance: PROPOFOL
  79. LEVOPHED [Concomitant]
     Active Substance: NOREPINEPHRINE BITARTRATE
  80. PRALUENT [Concomitant]
     Active Substance: ALIROCUMAB
  81. REGADENOSON [Concomitant]
     Active Substance: REGADENOSON
  82. TETRACYCLINE [Concomitant]
     Active Substance: TETRACYCLINE
  83. MEGESTROL [Concomitant]
     Active Substance: MEGESTROL
  84. MIDAZOLAM [Concomitant]
     Active Substance: MIDAZOLAM
  85. ENOXAPARIN [Concomitant]
     Active Substance: ENOXAPARIN
  86. ALPRAZOLAM [Concomitant]
     Active Substance: ALPRAZOLAM
  87. TUMS [Concomitant]
     Active Substance: CALCIUM CARBONATE
  88. ESCITALOPRAM [Concomitant]
     Active Substance: ESCITALOPRAM OXALATE
  89. CETIRIZINE [Concomitant]
     Active Substance: CETIRIZINE HYDROCHLORIDE

REACTIONS (28)
  - Chronic kidney disease-mineral and bone disorder [Not Recovered/Not Resolved]
  - End stage renal disease [Not Recovered/Not Resolved]
  - Fracture [Unknown]
  - Osteonecrosis [Unknown]
  - Renal tubular necrosis [Not Recovered/Not Resolved]
  - Chronic kidney disease [Not Recovered/Not Resolved]
  - Anaemia [Not Recovered/Not Resolved]
  - Acute kidney injury [Not Recovered/Not Resolved]
  - Fanconi syndrome acquired [Unknown]
  - Tubulointerstitial nephritis [Not Recovered/Not Resolved]
  - Renal failure [Not Recovered/Not Resolved]
  - Bone density decreased [Not Recovered/Not Resolved]
  - Tooth loss [Not Recovered/Not Resolved]
  - Hyperparathyroidism secondary [Not Recovered/Not Resolved]
  - Emotional distress [Unknown]
  - Intervertebral disc degeneration [Unknown]
  - Hypokalaemia [Recovered/Resolved]
  - Azotaemia [Recovered/Resolved]
  - Hyperphosphataemia [Recovered/Resolved]
  - Metabolic acidosis [Recovered/Resolved]
  - Hyponatraemia [Recovered/Resolved]
  - Pain [Unknown]
  - Hypokalaemia [Recovered/Resolved]
  - Back pain [Unknown]
  - Spinal osteoarthritis [Unknown]
  - Phlebolith [Unknown]
  - Physical disability [Unknown]
  - Blood creatinine increased [Unknown]

NARRATIVE: CASE EVENT DATE: 20090508
